FAERS Safety Report 6124790-5 (Version None)
Quarter: 2009Q1

REPORT INFORMATION
  Report Type: 
  Country: None (occurrence: None)
  Receive Date: 20090319
  Receipt Date: 20080608
  Transmission Date: 20090719
  Serious: Yes (Life-Threatening)
  Sender: FDA-Public Use
  Company Number: PHHY2008JP33810

PATIENT
  Age: 54 Year
  Sex: Male

DRUGS (1)
  1. DIOVAN [Suspect]
     Dosage: 1300 MG
     Route: 048

REACTIONS (1)
  - SUICIDE ATTEMPT [None]
